FAERS Safety Report 7126693-6 (Version None)
Quarter: 2010Q4

REPORT INFORMATION
  Report Type: 
  Country: None (occurrence: None)
  Receive Date: 20101129
  Receipt Date: 20101117
  Transmission Date: 20110411
  Serious: Yes (Other)
  Sender: FDA-Public Use
  Company Number: CA-ASTRAZENECA-2010SE53996

PATIENT
  Age: 797 Month
  Sex: Female
  Weight: 59 kg

DRUGS (14)
  1. PULMICORT [Suspect]
     Indication: ASTHMA
     Dosage: 2 PUFFS TWICE DAILY
     Route: 055
     Dates: start: 20021101
  2. PULMICORT [Suspect]
     Dosage: 2 PUFFS TWICE DAILY
     Route: 055
     Dates: start: 20100728
  3. PULMICORT [Suspect]
     Dosage: 2 PUFFS TWICE DAILY
     Route: 055
     Dates: start: 20100927, end: 20101031
  4. PULMICORT [Suspect]
     Dosage: 2 PUFFS TWICE DAILY
     Route: 055
     Dates: start: 20101031
  5. BLOOD PRESSURE MEDICATION [Concomitant]
  6. VERAPAMIL EXTENDED-RELEASE [Concomitant]
     Dosage: ONE TABLET AT BEDTIME WHEN REQUIRED
     Dates: start: 20101029
  7. RANITIDINE HCL [Concomitant]
     Dates: start: 20100728
  8. LORAZEPAM [Concomitant]
     Dosage: ONE TABLET EVERY SIX HOURS WHEN REQUIRED
     Dates: start: 20101112
  9. ATACAND [Concomitant]
     Dates: start: 20101009
  10. COZAAR [Concomitant]
     Dosage: ONE OR TWO TABLETS EACH MORNING
     Dates: start: 20101021
  11. ZOPLICONE [Concomitant]
     Dosage: ONE TABLET AT BEDTIME WHEN REQUIRED
     Dates: start: 20101021
  12. RAMIPRIL [Concomitant]
     Dates: start: 20101026
  13. RABEPRAZOLE EC [Concomitant]
     Dates: start: 20101112
  14. RABEPRAZOLE EC [Concomitant]
     Dates: start: 20101031

REACTIONS (5)
  - DIZZINESS [None]
  - HEART RATE IRREGULAR [None]
  - MYALGIA [None]
  - NAUSEA [None]
  - PALPITATIONS [None]
